FAERS Safety Report 13130789 (Version 1)
Quarter: 2017Q1

REPORT INFORMATION
  Report Type: Spontaneous
  Country: IT (occurrence: IT)
  Receive Date: 20170119
  Receipt Date: 20170119
  Transmission Date: 20170428
  Serious: Yes (Other)
  Sender: FDA-Public Use
  Company Number: IT-BAYER-2017-007724

PATIENT
  Age: 65 Year
  Sex: Male
  Weight: 80 kg

DRUGS (6)
  1. ACETYLSALICYLIC ACID (} 100 MG) [Suspect]
     Active Substance: ASPIRIN
     Dosage: DAILY DOSE 250 MG
     Route: 048
     Dates: start: 20161130, end: 20161201
  2. HEPARIN [Suspect]
     Active Substance: HEPARIN SODIUM
     Dosage: DAILY DOSE 9000 IU
     Dates: start: 20161130, end: 20161201
  3. TICLOPIDINE [Suspect]
     Active Substance: TICLOPIDINE
     Dosage: DAILY DOSE 250 MG
     Route: 048
     Dates: start: 20161129
  4. AMLODIPINE [Concomitant]
     Active Substance: AMLODIPINE BESYLATE
     Dosage: DAILY DOSE 10 MG
     Route: 048
     Dates: start: 20161129, end: 20161201
  5. TICAGRELOR [Suspect]
     Active Substance: TICAGRELOR
     Indication: ACUTE MYOCARDIAL INFARCTION
     Dosage: DAILY DOSE 270 MG
     Route: 048
     Dates: start: 20161130, end: 20161201
  6. ACETYLSALICYLIC ACID (} 100 MG) [Suspect]
     Active Substance: ASPIRIN
     Dosage: UNK
     Route: 048

REACTIONS (5)
  - Dysphagia [Unknown]
  - Pain in extremity [Unknown]
  - Cerebral haemorrhage [Unknown]
  - Aphasia [Unknown]
  - Facial paresis [Unknown]

NARRATIVE: CASE EVENT DATE: 20161201
